FAERS Safety Report 8600879 (Version 7)
Quarter: 2013Q1

REPORT INFORMATION
  Report Type: Spontaneous
  Country: US (occurrence: US)
  Receive Date: 20120606
  Receipt Date: 20130213
  Transmission Date: 20140127
  Serious: Yes (Death, Disabling, Other)
  Sender: FDA-Public Use
  Company Number: US-BAYER-2012-055520

PATIENT
  Age: 50 Year
  Sex: Female
  Weight: 96 kg

DRUGS (16)
  1. MAGNEVIST [Suspect]
     Indication: RENAL SCAN
     Dosage: UNK
     Dates: start: 20030807, end: 20030807
  2. MAGNEVIST [Suspect]
     Indication: CARDIAC IMAGING PROCEDURE
     Dosage: UNK
     Dates: start: 20030812, end: 20030812
  3. MAGNEVIST [Suspect]
     Indication: RENAL SCAN
     Dosage: UNK
     Dates: start: 20040203, end: 20040203
  4. WARFARIN [Concomitant]
     Dosage: 5 MG, UNK
     Route: 048
  5. DILTIAZEM ER [Concomitant]
     Dosage: 240 MG, UNK
     Route: 048
  6. CLONIDINE [Concomitant]
     Dosage: 0.3 MG, UNK
     Route: 048
  7. SEVELAMER [Concomitant]
     Dosage: 800 MG, UNK
     Route: 048
  8. ATORVASTATIN [Concomitant]
     Dosage: 10 MG, UNK
     Route: 048
  9. RAPAMUNE [Concomitant]
     Dosage: 5 MG, QD
     Route: 048
  10. SODIUM BICARBONATE [Concomitant]
     Dosage: 4 DF, BID
  11. BENICAR [Concomitant]
     Dosage: 20 MG, OM
     Route: 048
  12. CALCIUM CARBONATE [Concomitant]
     Dosage: 500 MG, UNK
     Route: 048
  13. LOPRESSOR [Concomitant]
     Dosage: 12.5 MG, BID
     Route: 048
  14. EPOGEN [Concomitant]
     Dosage: 10000 U, BIW
     Route: 058
  15. HEPARIN [Concomitant]
  16. NEPHROCAPS [Concomitant]

REACTIONS (24)
  - Nephrogenic systemic fibrosis [Fatal]
  - Post thrombotic syndrome [Fatal]
  - Skin induration [Fatal]
  - Skin hyperpigmentation [Fatal]
  - Rash [Fatal]
  - Ocular icterus [Fatal]
  - Skin discolouration [Fatal]
  - Skin mass [Fatal]
  - Mobility decreased [Fatal]
  - Arthralgia [Fatal]
  - Musculoskeletal pain [Fatal]
  - Pain [None]
  - Anxiety [None]
  - Injury [None]
  - Emotional distress [None]
  - Depression [None]
  - Anhedonia [None]
  - Joint range of motion decreased [Fatal]
  - Clubbing [Fatal]
  - Arthropathy [Fatal]
  - Skin hypertrophy [Fatal]
  - Skin disorder [Fatal]
  - Skin plaque [Fatal]
  - Oedema peripheral [Fatal]
